FAERS Safety Report 8300364-2 (Version None)
Quarter: 2012Q2

REPORT INFORMATION
  Report Type: 
  Country: None (occurrence: None)
  Receive Date: 20120420
  Receipt Date: 20120412
  Transmission Date: 20120825
  Serious: Yes (Other)
  Sender: FDA-Public Use
  Company Number: GB-JNJFOC-20120108267

PATIENT
  Sex: Male

DRUGS (1)
  1. SIMPONI [Suspect]
     Indication: PRODUCT USED FOR UNKNOWN INDICATION
     Route: 058
     Dates: start: 20120114

REACTIONS (13)
  - HAEMATOCHEZIA [None]
  - CHEST PAIN [None]
  - HYPERHIDROSIS [None]
  - JOINT SWELLING [None]
  - FEELING HOT [None]
  - BACK PAIN [None]
  - CHROMATURIA [None]
  - UPPER RESPIRATORY TRACT INFECTION [None]
  - ABDOMINAL DISTENSION [None]
  - ABDOMINAL PAIN [None]
  - GASTROOESOPHAGEAL REFLUX DISEASE [None]
  - PAIN [None]
  - BLOOD PRESSURE INCREASED [None]
